FAERS Safety Report 11213581 (Version 1)
Quarter: 2015Q2

REPORT INFORMATION
  Report Type: Spontaneous
  Country: FR (occurrence: FR)
  Receive Date: 20150623
  Receipt Date: 20150623
  Transmission Date: 20150821
  Serious: Yes (Hospitalization)
  Sender: FDA-Public Use
  Company Number: FR-INCYTE CORPORATION-2015IN002787

PATIENT
  Age: 60 Year
  Sex: Female

DRUGS (4)
  1. JAKAFI [Suspect]
     Active Substance: RUXOLITINIB
     Dosage: 10 MG, BID
     Route: 048
  2. ANTICOAGULANTS [Suspect]
     Active Substance: UNSPECIFIED INGREDIENT
     Indication: PORTAL VEIN FLOW DECREASED
     Route: 065
  3. ANTICOAGULANTS [Suspect]
     Active Substance: UNSPECIFIED INGREDIENT
     Indication: VARICES OESOPHAGEAL
  4. JAKAFI [Suspect]
     Active Substance: RUXOLITINIB
     Indication: MYELOFIBROSIS
     Dosage: 15 MG, BID
     Route: 048
     Dates: start: 201406

REACTIONS (4)
  - Nervous system disorder [Unknown]
  - Cytopenia [Unknown]
  - Herpes simplex encephalitis [Unknown]
  - Pulmonary embolism [Unknown]

NARRATIVE: CASE EVENT DATE: 201506
